FAERS Safety Report 5047403-2 (Version None)
Quarter: 2006Q3

REPORT INFORMATION
  Report Type: 
  Country: None (occurrence: None)
  Receive Date: 20060703
  Receipt Date: 20060620
  Transmission Date: 20061208
  Serious: Yes (Other)
  Sender: FDA-Public Use
  Company Number: 2006079469

PATIENT
  Age: 26 Year
  Sex: Female

DRUGS (1)
  1. LISTERINE (MENTHOL, METHYL SALICYLATE, EUCALYPTOL, THYMOL) [Suspect]
     Dosage: UNSPECIFIED AMOUNT 4 TIMES
     Dates: start: 20040101

REACTIONS (3)
  - DRY MOUTH [None]
  - ORAL PAIN [None]
  - SENSITIVITY OF TEETH [None]
